FAERS Safety Report 5475193-8 (Version None)
Quarter: 2007Q3

REPORT INFORMATION
  Report Type: 
  Country: None (occurrence: None)
  Receive Date: 20070928
  Receipt Date: 20070925
  Transmission Date: 20080115
  Serious: Yes (Hospitalization)
  Sender: FDA-Public Use
  Company Number: 2007BI018606

PATIENT
  Age: 65 Year
  Sex: Male
  Weight: 90.7194 kg

DRUGS (5)
  1. NATALIZUMAB [Suspect]
     Indication: MULTIPLE SCLEROSIS
     Dosage: 300 MG;QM;IV
     Route: 042
     Dates: start: 20050101, end: 20050201
  2. NATALIZUMAB [Suspect]
     Indication: MULTIPLE SCLEROSIS
     Dosage: 300 MG;QM;IV
     Route: 042
     Dates: start: 20070529, end: 20070529
  3. DIOVAN [Concomitant]
  4. IMDUR [Concomitant]
  5. MINOXIDIL [Concomitant]

REACTIONS (4)
  - CLOSTRIDIAL INFECTION [None]
  - PERIPHERAL VASCULAR DISORDER [None]
  - PNEUMONIA STAPHYLOCOCCAL [None]
  - THROMBOPHLEBITIS [None]
